FAERS Safety Report 13502654 (Version 1)
Quarter: 2017Q2

REPORT INFORMATION
  Report Type: Spontaneous
  Country: US (occurrence: US)
  Receive Date: 20170501
  Receipt Date: 20170501
  Transmission Date: 20170830
  Serious: Yes (Hospitalization, Other)
  Sender: FDA-Public Use
  Company Number: None

PATIENT
  Age: 76 Year
  Sex: Female
  Weight: 65.25 kg

DRUGS (5)
  1. VITAMIN D [Concomitant]
     Active Substance: CHOLECALCIFEROL
  2. CAL/MAGNESIUM SUPPLEMENT [Concomitant]
  3. HUMIRA [Suspect]
     Active Substance: ADALIMUMAB
     Indication: RHEUMATOID ARTHRITIS
     Dosage: ?          OTHER FREQUENCY:EVERY OTHER WEEK;OTHER ROUTE:INJECTION IN STOMACH?
     Dates: start: 20170210, end: 20170319
  4. VITAMIN C [Concomitant]
     Active Substance: ASCORBIC ACID
  5. LEVOTHYROXINE. [Concomitant]
     Active Substance: LEVOTHYROXINE

REACTIONS (6)
  - Chills [None]
  - Groin pain [None]
  - Arthralgia [None]
  - Nonspecific reaction [None]
  - Vomiting [None]
  - Body temperature increased [None]

NARRATIVE: CASE EVENT DATE: 20170319
